FAERS Safety Report 9844469 (Version 9)
Quarter: 2014Q3

REPORT INFORMATION
  Report Type: Spontaneous
  Country: CA (occurrence: CA)
  Receive Date: 20140127
  Receipt Date: 20140714
  Transmission Date: 20150326
  Serious: Yes (Other)
  Sender: FDA-Public Use
  Company Number: CA-ROCHE-1338190

PATIENT
  Age: 62 Year
  Sex: Male
  Weight: 68 kg

DRUGS (9)
  1. XOLAIR [Suspect]
     Active Substance: OMALIZUMAB
     Route: 058
     Dates: start: 20140327
  2. SPIRIVA [Concomitant]
     Active Substance: TIOTROPIUM BROMIDE MONOHYDRATE
  3. VENTOLIN [Concomitant]
     Active Substance: ALBUTEROL SULFATE
  4. XOLAIR [Suspect]
     Active Substance: OMALIZUMAB
     Indication: ASTHMA
     Route: 058
     Dates: start: 20131031
  5. UNIPHYL [Concomitant]
     Active Substance: THEOPHYLLINE ANHYDROUS
     Route: 065
  6. XOLAIR [Suspect]
     Active Substance: OMALIZUMAB
     Route: 058
     Dates: start: 20131219
  7. XOLAIR [Suspect]
     Active Substance: OMALIZUMAB
     Route: 058
     Dates: start: 20140213
  8. XOLAIR [Suspect]
     Active Substance: OMALIZUMAB
     Route: 058
  9. ADVAIR DISKUS [Concomitant]
     Active Substance: FLUTICASONE PROPIONATE\SALMETEROL XINAFOATE
     Route: 065

REACTIONS (13)
  - Chest pain [Not Recovered/Not Resolved]
  - Blood pressure systolic increased [Not Recovered/Not Resolved]
  - Heart rate increased [Unknown]
  - Headache [Recovering/Resolving]
  - Musculoskeletal chest pain [Not Recovered/Not Resolved]
  - Vision blurred [Unknown]
  - Tinnitus [Unknown]
  - Weight decreased [Unknown]
  - Skin reaction [Recovered/Resolved]
  - Dizziness [Unknown]
  - Discomfort [Unknown]
  - Drug ineffective [Unknown]
  - Accident [Unknown]

NARRATIVE: CASE EVENT DATE: 20131031
